FAERS Safety Report 8137313-6 (Version None)
Quarter: 2012Q1

REPORT INFORMATION
  Report Type: 
  Country: None (occurrence: None)
  Receive Date: 20120210
  Receipt Date: 20120130
  Transmission Date: 20120608
  Serious: Yes (Other)
  Sender: FDA-Public Use
  Company Number: 2012P1003743

PATIENT
  Age: 46 Year
  Sex: Male

DRUGS (4)
  1. MOXIFLOXACIN [Concomitant]
  2. CEFTRIAXONE [Concomitant]
  3. METRONIDAZOLE [Suspect]
     Indication: PNEUMONIA
     Dosage: 1500 MG;QD
  4. METRONIDAZOLE [Suspect]
     Indication: PNEUMONIA
     Dosage: 1500 MG;QD

REACTIONS (6)
  - METABOLIC ENCEPHALOPATHY [None]
  - TOXIC ENCEPHALOPATHY [None]
  - CYTOTOXIC OEDEMA [None]
  - DYSARTHRIA [None]
  - PARAESTHESIA [None]
  - NUCLEAR MAGNETIC RESONANCE IMAGING BRAIN ABNORMAL [None]
